FAERS Safety Report 7729378-8 (Version None)
Quarter: 2011Q3

REPORT INFORMATION
  Report Type: 
  Country: None (occurrence: None)
  Receive Date: 20110906
  Receipt Date: 20110823
  Transmission Date: 20111222
  Serious: No
  Sender: FDA-Public Use
  Company Number: KR-JNJFOC-20110901349

PATIENT
  Age: 73 Year
  Sex: Male

DRUGS (1)
  1. DURAGESIC-100 [Suspect]
     Indication: PROCEDURAL PAIN
     Dosage: APPLIED QUARTER OF A PATCH TWICE AND THEN, HALF OF A PATCH ONCE
     Route: 062
     Dates: start: 20110810, end: 20110823

REACTIONS (3)
  - NAUSEA [None]
  - WRONG TECHNIQUE IN DRUG USAGE PROCESS [None]
  - VOMITING [None]
